FAERS Safety Report 7437352-4 (Version None)
Quarter: 2011Q2

REPORT INFORMATION
  Report Type: 
  Country: None (occurrence: None)
  Receive Date: 20110426
  Receipt Date: 20110413
  Transmission Date: 20111010
  Serious: Yes (Hospitalization)
  Sender: FDA-Public Use
  Company Number: PHHY2011JP31605

PATIENT
  Age: 47 Year
  Sex: Male

DRUGS (14)
  1. AMOXAN [Concomitant]
     Indication: DEPRESSION
     Dosage: UNK UKN, UNK
     Route: 048
  2. ETHYL LOFLAZEPATE [Concomitant]
     Indication: DEPRESSION
     Dosage: UNK UKN, UNK
     Route: 048
  3. CLOTIAZEPAM [Concomitant]
     Indication: DEPRESSION
     Dosage: UNK UKN, UNK
     Route: 048
  4. LUVOX [Concomitant]
     Indication: DEPRESSION
     Dosage: UNK UKN, UNK
     Route: 048
  5. SEDIEL [Concomitant]
     Indication: DEPRESSION
     Dosage: 60 MG, UNK
     Route: 048
  6. VALPROATE SODIUM [Concomitant]
     Indication: DEPRESSION
     Dosage: UNK UKN, UNK
     Route: 048
  7. ETIZOLAM [Concomitant]
     Indication: DEPRESSION
     Dosage: UNK UKN, UNK
     Route: 048
  8. ABILIT [Concomitant]
     Indication: DEPRESSION
     Dosage: 300 MG, UNK
     Route: 048
  9. ARTANE [Concomitant]
     Indication: DEPRESSION
     Dosage: UNK UKN, UNK
     Route: 048
  10. LUDIOMIL [Suspect]
     Indication: DEPRESSION
     Dosage: UNK UKN, UNK
     Route: 048
  11. SENIRAN [Concomitant]
     Indication: DEPRESSION
     Dosage: UNK UKN, UNK
     Route: 048
  12. MYSLEE [Concomitant]
     Indication: DEPRESSION
     Dosage: UNK UKN, UNK
     Route: 048
  13. RITALIN [Suspect]
     Indication: DEPRESSION
     Dosage: UNK UKN, UNK
     Route: 048
  14. CALSMIN [Concomitant]
     Indication: DEPRESSION
     Dosage: UNK UKN, UNK
     Route: 048

REACTIONS (9)
  - DIABETES MELLITUS [None]
  - HYPERURICAEMIA [None]
  - ALCOHOLIC LIVER DISEASE [None]
  - DRUG DEPENDENCE [None]
  - MENINGIOMA [None]
  - FEELING ABNORMAL [None]
  - HYPERLIPIDAEMIA [None]
  - OBESITY [None]
  - HYPERTENSION [None]
